FAERS Safety Report 10745678 (Version 1)
Quarter: 2015Q1

REPORT INFORMATION
  Report Type: Spontaneous
  Country: US (occurrence: None)
  Receive Date: 20150127
  Receipt Date: 20150127
  Transmission Date: 20150721
  Serious: No
  Sender: FDA-Public Use
  Company Number: None

PATIENT
  Age: 71 Year
  Sex: Female

DRUGS (1)
  1. STIVARGA [Suspect]
     Active Substance: REGORAFENIB
     Indication: COLON CANCER
     Dosage: 4 TABLETS DAILY FOR 21 DAYS ON + ORAL
     Route: 048
     Dates: start: 20150114, end: 20150120

REACTIONS (7)
  - Feeling hot [None]
  - Back pain [None]
  - Headache [None]
  - Oral disorder [None]
  - Abdominal pain [None]
  - Decreased appetite [None]
  - Diarrhoea [None]

NARRATIVE: CASE EVENT DATE: 201501
